FAERS Safety Report 9387092 (Version 1)
Quarter: 2013Q3

REPORT INFORMATION
  Report Type: Spontaneous
  Country: GB (occurrence: GB)
  Receive Date: 20130708
  Receipt Date: 20130708
  Transmission Date: 20140515
  Serious: Yes (Disabling)
  Sender: FDA-Public Use
  Company Number: PHHY2013GB068518

PATIENT
  Age: 61 Year
  Sex: Female
  Weight: 56 kg

DRUGS (19)
  1. LEVOFLOXACIN [Suspect]
     Indication: INFECTION
     Dosage: 500 MG, BID
     Route: 048
     Dates: start: 20130423, end: 20130502
  2. FLIXOTIDE [Concomitant]
  3. TIOTROPIUM BROMIDE [Concomitant]
  4. AMLODIPINE [Concomitant]
  5. PARACETAMOL [Concomitant]
  6. OXYCODONE [Concomitant]
  7. MELOXICAM [Concomitant]
  8. SALBUTAMOL [Concomitant]
  9. DIAZEPAM [Concomitant]
  10. METOCLOPRAMIDE [Concomitant]
  11. PREMARIN [Concomitant]
  12. ZOLPIDEM [Concomitant]
  13. PREDNISOLONE [Concomitant]
  14. LANSOPRAZOLE [Concomitant]
  15. CLARITHROMYCIN [Concomitant]
  16. RAMIPRIL [Concomitant]
  17. MICONAZOLE [Concomitant]
  18. NYSTATIN [Concomitant]
  19. LACTULOSE [Concomitant]

REACTIONS (3)
  - Muscle atrophy [Unknown]
  - Musculoskeletal pain [Not Recovered/Not Resolved]
  - Arthralgia [Not Recovered/Not Resolved]
